FAERS Safety Report 4436868-2 (Version None)
Quarter: 2004Q3

REPORT INFORMATION
  Report Type: 
  Country: None (occurrence: None)
  Receive Date: 20040830
  Receipt Date: 20040802
  Transmission Date: 20050211
  Serious: Yes (Life-Threatening, Hospitalization)
  Sender: FDA-Public Use
  Company Number: PHBS2004JP10205

PATIENT
  Age: 50 Year
  Sex: Female
  Weight: 53 kg

DRUGS (4)
  1. NEORAL [Suspect]
     Indication: PSORIASIS
     Dosage: 150 MG/DAY
     Route: 048
     Dates: start: 20040524, end: 20040705
  2. ZYRTEC [Concomitant]
     Dosage: 10 MG/DAY
     Route: 048
     Dates: start: 20040522
  3. LOXONIN [Concomitant]
     Dosage: 180 MG/DAY
     Route: 048
     Dates: start: 20040515, end: 20040705
  4. MUCOSTA [Concomitant]
     Dosage: 300 MG/DAY
     Route: 048
     Dates: start: 20040515, end: 20040705

REACTIONS (3)
  - IDIOPATHIC THROMBOCYTOPENIC PURPURA [None]
  - PLATELET COUNT DECREASED [None]
  - PURPURA [None]
